FAERS Safety Report 22198123 (Version 1)
Quarter: 2023Q2

REPORT INFORMATION
  Report Type: Spontaneous
  Country: US (occurrence: US)
  Receive Date: 20230411
  Receipt Date: 20230411
  Transmission Date: 20230722
  Serious: Yes (Other)
  Sender: FDA-Public Use
  Company Number: US-AMGEN-USASP2023060234

PATIENT
  Age: 93 Year
  Sex: Male

DRUGS (1)
  1. ROMIPLOSTIM [Suspect]
     Active Substance: ROMIPLOSTIM
     Indication: Thrombocytopenia
     Dosage: UNK
     Route: 065

REACTIONS (4)
  - Thrombocytopenia [Recovering/Resolving]
  - Drug ineffective for unapproved indication [Unknown]
  - Helicobacter test positive [Unknown]
  - Off label use [Unknown]
